FAERS Safety Report 11797069 (Version 1)
Quarter: 2015Q4

REPORT INFORMATION
  Report Type: Report from Study
  Country: US (occurrence: US)
  Receive Date: 20151203
  Receipt Date: 20151203
  Transmission Date: 20160305
  Serious: Yes (Hospitalization, Other)
  Sender: FDA-Public Use
  Company Number: US-GILEAD-2015-0185115

PATIENT
  Age: 42 Year
  Sex: Male

DRUGS (15)
  1. DOXYCYCLINE. [Concomitant]
     Active Substance: DOXYCYCLINE
  2. OMEPRAZOLE. [Concomitant]
     Active Substance: OMEPRAZOLE
  3. DILTIAZEM [Concomitant]
     Active Substance: DILTIAZEM
  4. AMBRISENTAN [Suspect]
     Active Substance: AMBRISENTAN
     Indication: PULMONARY HYPERTENSION
     Dosage: 10 MG, QD
     Route: 065
     Dates: start: 20120709
  5. CALCIUM [Concomitant]
     Active Substance: CALCIUM
  6. KEPPRA [Concomitant]
     Active Substance: LEVETIRACETAM
  7. LINEZOLID. [Concomitant]
     Active Substance: LINEZOLID
  8. METFORMIN [Concomitant]
     Active Substance: METFORMIN HYDROCHLORIDE
  9. ASPIRIN                            /00002701/ [Concomitant]
     Active Substance: ASPIRIN
  10. ONDANSETRON [Concomitant]
     Active Substance: ONDANSETRON
  11. LASIX [Concomitant]
     Active Substance: FUROSEMIDE
  12. POTASSIUM CHLORIDE. [Concomitant]
     Active Substance: POTASSIUM CHLORIDE
  13. ADCIRCA [Suspect]
     Active Substance: TADALAFIL
     Indication: PRODUCT USED FOR UNKNOWN INDICATION
     Route: 065
  14. SPIRONOLACTONE. [Concomitant]
     Active Substance: SPIRONOLACTONE
  15. MATZIM LA [Concomitant]
     Active Substance: DILTIAZEM HYDROCHLORIDE

REACTIONS (2)
  - Pulmonary arterial hypertension [Unknown]
  - Dyspnoea [Unknown]
